FAERS Safety Report 11413798 (Version 2)
Quarter: 2015Q3

REPORT INFORMATION
  Report Type: Report from Study
  Country: RO (occurrence: RO)
  Receive Date: 20150824
  Receipt Date: 20150825
  Transmission Date: 20151125
  Serious: Yes (Death)
  Sender: FDA-Public Use
  Company Number: RO-ABBVIE-15P-135-1448991-00

PATIENT
  Age: 65 Year
  Sex: Female

DRUGS (4)
  1. MIRAPEXIN [Concomitant]
     Active Substance: PRAMIPEXOLE
     Indication: PARKINSON^S DISEASE
     Dosage: 1 X 1
  2. DUODOPA [Suspect]
     Active Substance: CARBIDOPA\LEVODOPA
     Indication: PARKINSON^S DISEASE
     Dosage: CR 6.6 ML/H; ED 3.5 ML / 24 H
     Route: 065
     Dates: start: 20131124, end: 20150820
  3. LEPONEX [Concomitant]
     Active Substance: CLOZAPINE
     Indication: PARKINSON^S DISEASE
  4. LEPONEX [Concomitant]
     Active Substance: CLOZAPINE
     Indication: PSYCHOTIC DISORDER
     Dosage: 2 X 1/2 TB

REACTIONS (3)
  - Loss of consciousness [Fatal]
  - Cardio-respiratory arrest [Fatal]
  - Sudden onset of sleep [Fatal]

NARRATIVE: CASE EVENT DATE: 20150820
